FAERS Safety Report 8936725 (Version 2)
Quarter: 2012Q4

REPORT INFORMATION
  Report Type: 
  Country: FI (occurrence: FI)
  Receive Date: 20121130
  Receipt Date: 20121203
  Transmission Date: 20130627
  Serious: Yes (Death, Other)
  Sender: FDA-Public Use
  Company Number: FI-EISAI INC-E7389-03284-SPO-FI

PATIENT
  Age: 54 Year
  Sex: Female

DRUGS (8)
  1. HALAVEN [Suspect]
     Indication: METASTATIC BREAST CANCER
     Dosage: UNKNOWN
     Route: 041
     Dates: start: 20120213, end: 20120502
  2. PRIMPERAN [Concomitant]
     Route: 048
     Dates: start: 20120213, end: 20120505
  3. KYTRIL [Concomitant]
     Route: 048
     Dates: start: 20120213, end: 20120502
  4. EMEND [Concomitant]
     Route: 048
     Dates: start: 20120213, end: 20120502
  5. GRANISETRON [Concomitant]
     Route: 041
     Dates: start: 20120213, end: 20120213
  6. ORADEXON [Concomitant]
     Route: 042
     Dates: start: 20120213, end: 20120502
  7. NEULASTA [Concomitant]
     Dates: start: 20120214, end: 20120503
  8. NEORECORMAN [Concomitant]
     Dates: start: 20120305, end: 20120502

REACTIONS (7)
  - Death [Fatal]
  - Gastrointestinal perforation [Unknown]
  - Intestinal ischaemia [Unknown]
  - Pleural effusion [Unknown]
  - Pneumonia [Unknown]
  - Dyspnoea [Unknown]
  - Nausea [Unknown]
